FAERS Safety Report 7441686-7 (Version None)
Quarter: 2011Q2

REPORT INFORMATION
  Report Type: 
  Country: None (occurrence: None)
  Receive Date: 20110428
  Receipt Date: 20100809
  Transmission Date: 20111010
  Serious: No
  Sender: FDA-Public Use
  Company Number: A0874617A

PATIENT
  Age: 54 Year
  Sex: Female

DRUGS (6)
  1. AMERGE [Suspect]
     Indication: MIGRAINE
     Dosage: 2.5MG AS REQUIRED
     Route: 048
     Dates: start: 20010101
  2. NABUMETONE [Concomitant]
  3. SINGULAIR [Concomitant]
  4. XANAX [Concomitant]
  5. GABAPENTIN [Concomitant]
  6. REMIFEMIN [Concomitant]

REACTIONS (5)
  - FACIAL PAIN [None]
  - PRODUCT QUALITY ISSUE [None]
  - ORAL PAIN [None]
  - ABASIA [None]
  - PAIN [None]
